FAERS Safety Report 16463158 (Version 3)
Quarter: 2019Q3

REPORT INFORMATION
  Report Type: Spontaneous
  Country: US (occurrence: US)
  Receive Date: 20190621
  Receipt Date: 20190801
  Transmission Date: 20191004
  Serious: No
  Sender: FDA-Public Use
  Company Number: US-PFIZER INC-2019258422

PATIENT
  Age: 50 Year
  Sex: Male
  Weight: 49.39 kg

DRUGS (1)
  1. GENOTROPIN MQ [Suspect]
     Active Substance: SOMATROPIN
     Indication: HYPOTHYROIDISM
     Dosage: 0.2 MG, DAILY
     Dates: start: 20171030

REACTIONS (5)
  - Device leakage [Unknown]
  - Product use in unapproved indication [Unknown]
  - Injection site bruising [Not Recovered/Not Resolved]
  - Weight increased [Unknown]
  - Off label use [Unknown]

NARRATIVE: CASE EVENT DATE: 20171030
